FAERS Safety Report 6690418-9 (Version None)
Quarter: 2010Q2

REPORT INFORMATION
  Report Type: 
  Country: None (occurrence: None)
  Receive Date: 20100421
  Receipt Date: 20091009
  Transmission Date: 20101027
  Serious: No
  Sender: FDA-Public Use
  Company Number: US-ASTRAZENECA-2009SE19239

PATIENT
  Age: 78 Year
  Sex: Male

DRUGS (3)
  1. CASODEX [Suspect]
     Route: 048
     Dates: start: 20070501
  2. LIPITOR [Concomitant]
     Indication: HYPERCHOLESTEROLAEMIA
  3. AVAPRO [Concomitant]
     Indication: HYPERTENSION

REACTIONS (2)
  - DYSPHONIA [None]
  - HOT FLUSH [None]
